FAERS Safety Report 8353506-7 (Version None)
Quarter: 2012Q2

REPORT INFORMATION
  Report Type: 
  Country: None (occurrence: None)
  Receive Date: 20120511
  Receipt Date: 20110426
  Transmission Date: 20120825
  Serious: No
  Sender: FDA-Public Use
  Company Number: US-GLAXOSMITHKLINE-A0925544A

PATIENT
  Age: 62 Year
  Sex: Female

DRUGS (4)
  1. THYROID MEDICATION [Concomitant]
  2. SYNTHROID [Concomitant]
  3. VITAMIN TAB [Concomitant]
  4. TYKERB [Suspect]
     Indication: BREAST CANCER
     Dosage: 1250MG PER DAY
     Route: 048
     Dates: start: 20110104

REACTIONS (7)
  - ANDROGENETIC ALOPECIA [None]
  - SKIN CHAPPED [None]
  - DRY SKIN [None]
  - LACERATION [None]
  - SKIN FISSURES [None]
  - GINGIVAL DISORDER [None]
  - GINGIVAL ERYTHEMA [None]
